FAERS Safety Report 7110806-6 (Version None)
Quarter: 2010Q4

REPORT INFORMATION
  Report Type: 
  Country: None (occurrence: None)
  Receive Date: 20101116
  Receipt Date: 20101116
  Transmission Date: 20110411
  Serious: Yes (Other)
  Sender: FDA-Public Use
  Company Number: None

PATIENT
  Sex: Female

DRUGS (1)
  1. HUMIRA [Suspect]
     Indication: ARTHRITIS
     Dosage: EVERY 2 WEEKS IV
     Route: 042
     Dates: start: 20100301, end: 20100501

REACTIONS (3)
  - DRUG INEFFECTIVE [None]
  - RASH [None]
  - SKIN DISORDER [None]
